FAERS Safety Report 20389431 (Version 1)
Quarter: 2022Q1

REPORT INFORMATION
  Report Type: Spontaneous
  Country: US (occurrence: None)
  Receive Date: 20220128
  Receipt Date: 20220128
  Transmission Date: 20220423
  Serious: No
  Sender: FDA-Public Use
  Company Number: 2022A033178

PATIENT
  Age: 19078 Day
  Sex: Female
  Weight: 136.1 kg

DRUGS (2)
  1. SYMBICORT [Suspect]
     Active Substance: BUDESONIDE\FORMOTEROL FUMARATE DIHYDRATE
     Indication: Asthma
     Dosage: 160/4.5 MCG 2 PUFFS TWICE DAILY
     Route: 055
  2. SYMBICORT [Suspect]
     Active Substance: BUDESONIDE\FORMOTEROL FUMARATE DIHYDRATE
     Indication: Chronic obstructive pulmonary disease
     Dosage: 160/4.5 MCG 2 PUFFS TWICE DAILY
     Route: 055

REACTIONS (6)
  - Dysphonia [Not Recovered/Not Resolved]
  - Device malfunction [Unknown]
  - Product dose omission issue [Unknown]
  - Device delivery system issue [Unknown]
  - Insurance issue [Unknown]
  - Device use issue [Unknown]

NARRATIVE: CASE EVENT DATE: 20220117
